FAERS Safety Report 5108673-5 (Version None)
Quarter: 2006Q3

REPORT INFORMATION
  Report Type: 
  Country: None (occurrence: None)
  Receive Date: 20060914
  Receipt Date: 20060911
  Transmission Date: 20061208
  Serious: Yes (Hospitalization, Other)
  Sender: FDA-Public Use
  Company Number: AUWYE894212SEP06

PATIENT
  Age: 71 Year
  Sex: Male

DRUGS (1)
  1. EFFEXOR XR [Suspect]
     Indication: DEPRESSION
     Dosage: 225 MG 1X PER 1 DAY ORAL
     Route: 048
     Dates: start: 20010101

REACTIONS (1)
  - SUBDURAL HAEMORRHAGE [None]
